FAERS Safety Report 7920719-5 (Version None)
Quarter: 2011Q4

REPORT INFORMATION
  Report Type: 
  Country: None (occurrence: None)
  Receive Date: 20111117
  Receipt Date: 20111104
  Transmission Date: 20120403
  Serious: Yes (Hospitalization)
  Sender: FDA-Public Use
  Company Number: US-BAYER-201035746NA

PATIENT
  Age: 20 Year
  Sex: Female

DRUGS (2)
  1. DROSPIRENONE AND ETHINYL ESTRADIOL [Suspect]
     Indication: CONTRACEPTION
     Dosage: UNK
     Route: 048
     Dates: start: 20080601, end: 20090901
  2. YAZ [Suspect]
     Indication: CONTRACEPTION
     Dosage: UNK
     Dates: start: 20080601, end: 20090901

REACTIONS (10)
  - ABDOMINAL DISTENSION [None]
  - CHOLELITHIASIS [None]
  - FLATULENCE [None]
  - DYSPEPSIA [None]
  - DEPRESSION [None]
  - DIARRHOEA [None]
  - CONSTIPATION [None]
  - CHOLECYSTITIS CHRONIC [None]
  - SCAR [None]
  - ANXIETY [None]
